FAERS Safety Report 21863694 (Version 3)
Quarter: 2023Q1

REPORT INFORMATION
  Report Type: Spontaneous
  Country: BR (occurrence: BR)
  Receive Date: 20230116
  Receipt Date: 20230217
  Transmission Date: 20230417
  Serious: Yes (Hospitalization, Other)
  Sender: FDA-Public Use
  Company Number: BR-002147023-NVSC2023BR006481

PATIENT
  Sex: Female
  Weight: 84 kg

DRUGS (2)
  1. COSENTYX [Suspect]
     Active Substance: SECUKINUMAB
     Indication: Ankylosing spondylitis
     Dosage: 2 DOSAGE FORM, QMO (150 MG/1ML X1 LIQ AUTOINJECTOR)
     Route: 065
  2. COSENTYX [Suspect]
     Active Substance: SECUKINUMAB
     Dosage: 2 DOSAGE FORM, 28D (STRENGTH: 150 MG, 2 FILLED PENS, EVERY 28 DAYS, START DATE- 5 YEARS)
     Route: 058

REACTIONS (7)
  - COVID-19 [Recovered/Resolved]
  - Myelofibrosis [Not Recovered/Not Resolved]
  - Autism spectrum disorder [Unknown]
  - Illness [Not Recovered/Not Resolved]
  - Ill-defined disorder [Not Recovered/Not Resolved]
  - Device malfunction [Not Recovered/Not Resolved]
  - Drug dose omission by device [Not Recovered/Not Resolved]

NARRATIVE: CASE EVENT DATE: 20200101
